FAERS Safety Report 18834093 (Version 3)
Quarter: 2021Q2

REPORT INFORMATION
  Report Type: Report from Study
  Country: None (occurrence: US)
  Receive Date: 20210203
  Receipt Date: 20210414
  Transmission Date: 20210717
  Serious: Yes (Hospitalization, Other)
  Sender: FDA-Public Use
  Company Number: US-ABBVIE-19K-163-2962910-00

PATIENT
  Age: 71 Year
  Sex: Female

DRUGS (13)
  1. HUMIRA [Suspect]
     Active Substance: ADALIMUMAB
     Indication: PSORIASIS
  2. HUMIRA [Suspect]
     Active Substance: ADALIMUMAB
     Indication: PSORIASIS
     Route: 058
     Dates: start: 20210223
  3. ZANAFLEX [Suspect]
     Active Substance: TIZANIDINE HYDROCHLORIDE
     Indication: PRODUCT USED FOR UNKNOWN INDICATION
     Dosage: 0.75 DOSAGE
     Route: 065
     Dates: start: 20201211
  4. HUMIRA [Suspect]
     Active Substance: ADALIMUMAB
     Indication: PSORIATIC ARTHROPATHY
     Route: 058
  5. HUMIRA [Suspect]
     Active Substance: ADALIMUMAB
     Indication: PSORIASIS
  6. EPIPEN [Concomitant]
     Active Substance: EPINEPHRINE
     Indication: PRODUCT USED FOR UNKNOWN INDICATION
  7. HUMIRA [Suspect]
     Active Substance: ADALIMUMAB
     Indication: PSORIATIC ARTHROPATHY
     Route: 058
     Dates: start: 20160101
  8. HUMIRA [Suspect]
     Active Substance: ADALIMUMAB
     Indication: PSORIATIC ARTHROPATHY
     Route: 058
     Dates: start: 20060101
  9. PROLIA [Suspect]
     Active Substance: DENOSUMAB
     Indication: PRODUCT USED FOR UNKNOWN INDICATION
     Route: 065
     Dates: start: 20201211
  10. TRULICITY [Suspect]
     Active Substance: DULAGLUTIDE
     Indication: PRODUCT USED FOR UNKNOWN INDICATION
     Dosage: 0.75 DOSAGE
     Route: 065
     Dates: start: 20201211
  11. COVID?19 VACCINE NOS. [Concomitant]
     Active Substance: COVID-19 VACCINE NOS
     Indication: COVID-19 IMMUNISATION
     Route: 030
  12. METHOTREXATE. [Concomitant]
     Active Substance: METHOTREXATE
     Indication: PRODUCT USED FOR UNKNOWN INDICATION
  13. IMODIUM [Concomitant]
     Active Substance: LOPERAMIDE HYDROCHLORIDE
     Indication: PRODUCT USED FOR UNKNOWN INDICATION

REACTIONS (28)
  - Fall [Recovered/Resolved]
  - Sluggishness [Unknown]
  - Pain [Unknown]
  - Nephropathy [Recovering/Resolving]
  - Diabetes mellitus [Unknown]
  - Abdominal pain [Unknown]
  - Device difficult to use [Recovered/Resolved]
  - Transfusion [Unknown]
  - Osteoarthritis [Not Recovered/Not Resolved]
  - Pain [Recovered/Resolved]
  - Spinal disorder [Recovering/Resolving]
  - In vitro fertilisation [Unknown]
  - Sleep apnoea syndrome [Unknown]
  - Lymphoedema [Recovering/Resolving]
  - Ankle fracture [Unknown]
  - Drug hypersensitivity [Not Recovered/Not Resolved]
  - Dry mouth [Unknown]
  - Rotator cuff syndrome [Not Recovered/Not Resolved]
  - Coronary artery occlusion [Not Recovered/Not Resolved]
  - Cardiac operation [Recovered/Resolved]
  - Blood creatinine increased [Not Recovered/Not Resolved]
  - Clavicle fracture [Recovered/Resolved]
  - Coronary artery disease [Unknown]
  - Psoriasis [Unknown]
  - Haemoglobin decreased [Not Recovered/Not Resolved]
  - Hip fracture [Recovered/Resolved]
  - Bone loss [Unknown]
  - Injection site pain [Recovered/Resolved]

NARRATIVE: CASE EVENT DATE: 2005
